FAERS Safety Report 5945037-6 (Version None)
Quarter: 2008Q4

REPORT INFORMATION
  Report Type: 
  Country: None (occurrence: None)
  Receive Date: 20081107
  Receipt Date: 20081028
  Transmission Date: 20090506
  Serious: Yes (Hospitalization, Other)
  Sender: FDA-Public Use
  Company Number: US-CELGENEUS-163-21880-08101902

PATIENT
  Sex: Male
  Weight: 77.18 kg

DRUGS (2)
  1. REVLIMID [Suspect]
     Indication: MULTIPLE MYELOMA
     Route: 048
     Dates: start: 20081030
  2. REVLIMID [Suspect]
     Route: 048
     Dates: start: 20080920, end: 20081001

REACTIONS (5)
  - ASTHENIA [None]
  - BLOOD PRESSURE DECREASED [None]
  - FALL [None]
  - LOWER LIMB FRACTURE [None]
  - SYNCOPE [None]
